FAERS Safety Report 18740674 (Version 1)
Quarter: 2021Q1

REPORT INFORMATION
  Report Type: Spontaneous
  Country: US (occurrence: US)
  Receive Date: 20210114
  Receipt Date: 20210114
  Transmission Date: 20210419
  Serious: Yes (Hospitalization)
  Sender: FDA-Public Use
  Company Number: US-MYLANLABS-2021M1001786

PATIENT
  Age: 19 Year
  Sex: Female

DRUGS (1)
  1. TACROLIMUS. [Suspect]
     Active Substance: TACROLIMUS
     Indication: IMMUNOSUPPRESSANT DRUG THERAPY
     Route: 065

REACTIONS (4)
  - Focal segmental glomerulosclerosis [Recovering/Resolving]
  - Haemolytic uraemic syndrome [Recovering/Resolving]
  - Renal tubular necrosis [Recovering/Resolving]
  - Thrombotic microangiopathy [Recovering/Resolving]
